FAERS Safety Report 4690198-2 (Version None)
Quarter: 2005Q2

REPORT INFORMATION
  Report Type: 
  Country: None (occurrence: None)
  Receive Date: 20050613
  Receipt Date: 20050607
  Transmission Date: 20051028
  Serious: Yes (Hospitalization)
  Sender: FDA-Public Use
  Company Number: 163-20785-05050241

PATIENT
  Age: 68 Year
  Sex: Male

DRUGS (1)
  1. THALOMID [Suspect]
     Indication: MULTIPLE MYELOMA
     Dosage: 100 MG, QD ORAL
     Route: 048
     Dates: start: 20030501

REACTIONS (4)
  - ATRIAL FIBRILLATION [None]
  - CHRONIC OBSTRUCTIVE AIRWAYS DISEASE EXACERBATED [None]
  - DYSPNOEA [None]
  - NON-SMALL CELL LUNG CANCER RECURRENT [None]
